FAERS Safety Report 6645979-2 (Version None)
Quarter: 2010Q1

REPORT INFORMATION
  Report Type: 
  Country: None (occurrence: None)
  Receive Date: 20100323
  Receipt Date: 20100315
  Transmission Date: 20100710
  Serious: Yes (Death, Other)
  Sender: FDA-Public Use
  Company Number: GB-SANOFI-AVENTIS-2009SA000661

PATIENT
  Sex: Male
  Weight: 77 kg

DRUGS (4)
  1. TAXOTERE [Suspect]
     Indication: HEAD AND NECK CANCER
     Route: 042
     Dates: start: 20091013, end: 20091013
  2. CISPLATIN [Concomitant]
     Indication: HEAD AND NECK CANCER
  3. FLUOROURACIL [Concomitant]
     Indication: HEAD AND NECK CANCER
  4. GRANULOCYTE COLONY STIMULATING FACTOR [Concomitant]

REACTIONS (9)
  - BACTERIAL INFECTION [None]
  - CONFUSIONAL STATE [None]
  - DEHYDRATION [None]
  - INFECTION [None]
  - MOUTH ULCERATION [None]
  - NEUTROPENIC SEPSIS [None]
  - PNEUMONIA [None]
  - PYREXIA [None]
  - SHOCK [None]
